FAERS Safety Report 9955306 (Version 2)
Quarter: 2014Q1

REPORT INFORMATION
  Report Type: Report from Study
  Country: IL (occurrence: IL)
  Receive Date: 20140304
  Receipt Date: 20140304
  Transmission Date: 20141002
  Serious: Yes (Other)
  Sender: FDA-Public Use
  Company Number: IL-ABBVIE-12P-082-1008407-00

PATIENT
  Sex: Female

DRUGS (1)
  1. HUMIRA [Suspect]
     Indication: CROHN^S DISEASE
     Route: 058
     Dates: start: 20120801, end: 20121022

REACTIONS (2)
  - C-reactive protein increased [Not Recovered/Not Resolved]
  - Intestinal stenosis [Recovering/Resolving]
